FAERS Safety Report 9396994 (Version 1)
Quarter: 2013Q3

REPORT INFORMATION
  Report Type: Spontaneous
  Country: US (occurrence: None)
  Receive Date: 20130710
  Receipt Date: 20130710
  Transmission Date: 20140515
  Serious: Yes (Other)
  Sender: FDA-Public Use
  Company Number: None

PATIENT
  Age: 33 Year
  Sex: Male

DRUGS (1)
  1. HUMIRA [Suspect]
     Indication: CROHN^S DISEASE
     Dosage: BIWEEKLY, SQ
     Dates: start: 20100301, end: 20130501

REACTIONS (2)
  - Chronic myeloid leukaemia [None]
  - Hypertriglyceridaemia [None]
